FAERS Safety Report 4960083-7 (Version None)
Quarter: 2006Q1

REPORT INFORMATION
  Report Type: 
  Country: None (occurrence: None)
  Receive Date: 20060331
  Receipt Date: 20050317
  Transmission Date: 20060701
  Serious: Yes (Hospitalization, Other)
  Sender: FDA-Public Use
  Company Number: US-MERCK-0503USA03431

PATIENT
  Age: 60 Year
  Sex: Female
  Weight: 95 kg

DRUGS (31)
  1. VIOXX [Suspect]
     Indication: BACK PAIN
     Route: 048
     Dates: start: 20000101, end: 20040101
  2. VIOXX [Suspect]
     Route: 048
     Dates: start: 20000101, end: 20040101
  3. VIOXX [Suspect]
     Route: 048
     Dates: start: 20000101, end: 20040101
  4. VIOXX [Suspect]
     Route: 048
     Dates: start: 20000101, end: 20040101
  5. VIOXX [Suspect]
     Indication: SHOULDER PAIN
     Route: 048
     Dates: start: 20000101, end: 20040101
  6. VIOXX [Suspect]
     Route: 048
     Dates: start: 20000101, end: 20040101
  7. VIOXX [Suspect]
     Route: 048
     Dates: start: 20000101, end: 20040101
  8. VIOXX [Suspect]
     Route: 048
     Dates: start: 20000101, end: 20040101
  9. ASPIRIN [Concomitant]
     Route: 065
  10. ULTRAM [Concomitant]
     Route: 065
  11. VICODIN [Concomitant]
     Route: 065
  12. DARVOCET [Concomitant]
     Route: 065
  13. ELAVIL [Concomitant]
     Route: 065
  14. GLUCOPHAGE [Concomitant]
     Route: 065
  15. SYNTHROID [Concomitant]
     Route: 065
  16. POTASSIUM CHLORIDE [Concomitant]
     Route: 065
  17. TAMOXIFEN CITRATE [Concomitant]
     Route: 065
  18. LASIX [Concomitant]
     Route: 065
  19. METFORMIN [Concomitant]
     Route: 065
  20. ATENOLOL [Concomitant]
     Route: 065
  21. REGLAN [Concomitant]
     Route: 065
  22. PROTONIX [Concomitant]
     Route: 065
  23. COLACE [Concomitant]
     Route: 065
  24. AMIODARONE [Concomitant]
     Route: 065
  25. PHENERGAN TABLETS/SUPPOSITORIES [Concomitant]
     Route: 065
  26. PHOSLO [Concomitant]
     Route: 065
  27. PAROXETINE [Concomitant]
     Route: 065
  28. GLIPIZIDE [Concomitant]
     Route: 065
  29. FLONASE [Concomitant]
     Route: 065
  30. PRILOSEC [Concomitant]
     Route: 065
  31. URSODIOL [Concomitant]
     Route: 065

REACTIONS (37)
  - ANOXIC ENCEPHALOPATHY [None]
  - ANURIA [None]
  - ARTHRALGIA [None]
  - BREAST CANCER [None]
  - CARDIAC FAILURE CONGESTIVE [None]
  - CARDIAC REHABILITATION THERAPY [None]
  - CARDIO-RESPIRATORY ARREST [None]
  - CARDIOMEGALY [None]
  - CARDIOVASCULAR DISORDER [None]
  - CHOLELITHIASIS [None]
  - CONSTIPATION [None]
  - CORONARY ARTERY DISEASE [None]
  - CORONARY ARTERY STENOSIS [None]
  - CYANOSIS [None]
  - DEPRESSION [None]
  - EJECTION FRACTION DECREASED [None]
  - FIBROMYALGIA [None]
  - GASTROOESOPHAGEAL REFLUX DISEASE [None]
  - HAEMODIALYSIS [None]
  - HYPERTENSION [None]
  - ISCHAEMIA [None]
  - LYMPHADENECTOMY [None]
  - MALIGNANT BREAST LUMP REMOVAL [None]
  - MASS EXCISION [None]
  - MENTAL DISORDER DUE TO A GENERAL MEDICAL CONDITION [None]
  - MITRAL VALVE INCOMPETENCE [None]
  - MUSCULOSKELETAL CHEST PAIN [None]
  - MYOCARDIAL ISCHAEMIA [None]
  - PERICARDIAL EFFUSION [None]
  - RENAL FAILURE [None]
  - RENAL FAILURE ACUTE [None]
  - SINUS TACHYCARDIA [None]
  - SYNCOPE [None]
  - THROMBOCYTOPENIA [None]
  - VENTRICULAR DYSFUNCTION [None]
  - VENTRICULAR FIBRILLATION [None]
  - WEIGHT INCREASED [None]
